FAERS Safety Report 11876907 (Version 2)
Quarter: 2016Q1

REPORT INFORMATION
  Report Type: Report from Study
  Country: HU (occurrence: HU)
  Receive Date: 20151229
  Receipt Date: 20160121
  Transmission Date: 20160526
  Serious: Yes (Hospitalization)
  Sender: FDA-Public Use
  Company Number: HU-BIOGEN-2014BI110868

PATIENT
  Age: 37 Year
  Sex: Female
  Weight: 106 kg

DRUGS (20)
  1. POTASSIUM CHLORIDE. [Concomitant]
     Active Substance: POTASSIUM CHLORIDE
     Indication: SYSTEMIC LUPUS ERYTHEMATOSUS
     Route: 048
     Dates: start: 2004, end: 2014
  2. VEROSPIRON [Concomitant]
     Active Substance: SPIRONOLACTONE
  3. CALCIUM CITRATE [Concomitant]
     Active Substance: CALCIUM CITRATE
     Indication: OSTEOPENIA
     Route: 048
     Dates: start: 2009
  4. DIPANKRIN [Concomitant]
     Active Substance: PANCRELIPASE
     Indication: MALABSORPTION
     Route: 048
     Dates: start: 2004
  5. MYCOPHENOLATE MOFETIL. [Suspect]
     Active Substance: MYCOPHENOLATE MOFETIL
     Route: 048
     Dates: start: 20141009, end: 20141021
  6. WARFARIN [Concomitant]
     Active Substance: WARFARIN
     Indication: ANTICOAGULANT THERAPY
     Route: 048
     Dates: start: 2011
  7. VITAMIN E [Concomitant]
     Active Substance: .ALPHA.-TOCOPHEROL
     Indication: HEPATIC CIRRHOSIS
     Route: 048
     Dates: start: 2011
  8. MEDROL [Concomitant]
     Active Substance: METHYLPREDNISOLONE
  9. FURON [Concomitant]
     Active Substance: FUROSEMIDE
  10. CHOLECALCIFEROL [Concomitant]
     Active Substance: CHOLECALCIFEROL
     Indication: OSTEOPENIA
     Route: 048
     Dates: start: 2009
  11. SILYMARIN [Concomitant]
     Active Substance: MILK THISTLE
     Indication: HEPATIC CIRRHOSIS
     Route: 048
     Dates: start: 20140819
  12. ESOMEPRAZOLE [Concomitant]
     Active Substance: ESOMEPRAZOLE
     Indication: HYPERCHLORHYDRIA
     Route: 048
     Dates: start: 2004
  13. MEDROL [Concomitant]
     Active Substance: METHYLPREDNISOLONE
  14. LIPANOR [Concomitant]
     Active Substance: CIPROFIBRATE
  15. MYCOPHENOLATE MOFETIL. [Suspect]
     Active Substance: MYCOPHENOLATE MOFETIL
     Indication: LUPUS NEPHRITIS
     Route: 048
     Dates: start: 20140318, end: 20140324
  16. MYCOPHENOLATE MOFETIL. [Suspect]
     Active Substance: MYCOPHENOLATE MOFETIL
     Route: 048
     Dates: start: 20140325, end: 20140816
  17. BISOPROLOL [Concomitant]
     Active Substance: BISOPROLOL
     Indication: HYPERTENSION
     Route: 048
     Dates: start: 2004
  18. CIPROFIBRATE [Concomitant]
     Active Substance: CIPROFIBRATE
     Indication: HEPATIC CIRRHOSIS
     Route: 048
     Dates: start: 20140922
  19. MEDROL [Concomitant]
     Active Substance: METHYLPREDNISOLONE
  20. MYCOPHENOLATE MOFETIL. [Suspect]
     Active Substance: MYCOPHENOLATE MOFETIL
     Route: 048
     Dates: start: 20140817, end: 20141008

REACTIONS (1)
  - Lupus nephritis [Recovered/Resolved with Sequelae]

NARRATIVE: CASE EVENT DATE: 20141022
